FAERS Safety Report 21480691 (Version 1)
Quarter: 2022Q4

REPORT INFORMATION
  Report Type: Spontaneous
  Country: US (occurrence: None)
  Receive Date: 20221019
  Receipt Date: 20221019
  Transmission Date: 20230112
  Serious: Yes (Other)
  Sender: FDA-Public Use
  Company Number: None

PATIENT
  Age: 70 Year
  Sex: Male

DRUGS (1)
  1. SILDENAFIL [Suspect]
     Active Substance: SILDENAFIL
     Indication: Erectile dysfunction
     Dosage: 1 MG/ML DAILY ORAL
     Route: 048
     Dates: start: 20220918, end: 20221010

REACTIONS (1)
  - Visual impairment [None]

NARRATIVE: CASE EVENT DATE: 20220918
